FAERS Safety Report 21630050 (Version 2)
Quarter: 2023Q1

REPORT INFORMATION
  Report Type: Spontaneous
  Country: US (occurrence: US)
  Receive Date: 20221122
  Receipt Date: 20230123
  Transmission Date: 20230418
  Serious: No
  Sender: FDA-Public Use
  Company Number: US-KARYOPHARM-2022KPT001219

PATIENT

DRUGS (2)
  1. XPOVIO [Suspect]
     Active Substance: SELINEXOR
     Indication: Plasma cell myeloma
     Dosage: 60 MG, WEEKLY
     Route: 048
     Dates: start: 20221008
  2. XPOVIO [Suspect]
     Active Substance: SELINEXOR
     Dosage: 60 MG, WEEKLY
     Route: 048
     Dates: start: 202211, end: 20221214

REACTIONS (18)
  - Dyspepsia [Not Recovered/Not Resolved]
  - Bone pain [Unknown]
  - Depressed mood [Unknown]
  - Heart rate increased [Unknown]
  - Blood pressure decreased [Unknown]
  - Dyspnoea [Unknown]
  - Alopecia [Unknown]
  - Blood glucose increased [Unknown]
  - Wheezing [Recovering/Resolving]
  - Eructation [Unknown]
  - Pharyngeal swelling [Unknown]
  - Thinking abnormal [Unknown]
  - Hallucination [Recovering/Resolving]
  - Memory impairment [Unknown]
  - Vomiting [Unknown]
  - Asthenia [Unknown]
  - Dizziness [Unknown]
  - Therapeutic product effect decreased [Unknown]

NARRATIVE: CASE EVENT DATE: 20220101
